FAERS Safety Report 5359736-0 (Version None)
Quarter: 2007Q2

REPORT INFORMATION
  Report Type: 
  Country: None (occurrence: None)
  Receive Date: 20070530
  Receipt Date: 20070316
  Transmission Date: 20071010
  Serious: No
  Sender: FDA-Public Use
  Company Number: 2007PV031899

PATIENT
  Age: 48 Year
  Sex: Male
  Weight: 152.4086 kg

DRUGS (5)
  1. BYETTA [Suspect]
     Indication: DIABETES MELLITUS NON-INSULIN-DEPENDENT
     Dosage: 5 + 10 MCG; BID; SC
     Route: 058
     Dates: start: 20070130, end: 20070201
  2. BYETTA [Suspect]
     Indication: DIABETES MELLITUS NON-INSULIN-DEPENDENT
     Dosage: 5 + 10 MCG; BID; SC
     Route: 058
     Dates: start: 20070201
  3. GLUCOVANCE [Concomitant]
  4. ACTOS [Concomitant]
  5. GLUCOVANCE [Concomitant]

REACTIONS (2)
  - BLOOD GLUCOSE INCREASED [None]
  - WEIGHT DECREASED [None]
